FAERS Safety Report 12214392 (Version 1)
Quarter: 2016Q1

REPORT INFORMATION
  Report Type: Spontaneous
  Country: PL (occurrence: PL)
  Receive Date: 20160328
  Receipt Date: 20160328
  Transmission Date: 20160526
  Serious: Yes (Other)
  Sender: FDA-Public Use
  Company Number: PL-ALLERGAN-1650425

PATIENT
  Age: 30 Year
  Sex: Female

DRUGS (2)
  1. LEVOSERT [Suspect]
     Active Substance: LEVONORGESTREL
     Indication: PRODUCT USED FOR UNKNOWN INDICATION
     Dosage: 20 ?G, QD
     Route: 015
     Dates: start: 20151118, end: 20151208
  2. LEVOSERT [Suspect]
     Active Substance: LEVONORGESTREL
     Dosage: 20 ?G, QD
     Route: 015
     Dates: start: 20160119, end: 20160314

REACTIONS (2)
  - Device expulsion [Unknown]
  - Haemorrhage [Unknown]
